FAERS Safety Report 7383764-7 (Version None)
Quarter: 2011Q1

REPORT INFORMATION
  Report Type: 
  Country: None (occurrence: None)
  Receive Date: 20110330
  Receipt Date: 20110308
  Transmission Date: 20110831
  Serious: No
  Sender: FDA-Public Use
  Company Number: JP-ROCHE-768051

PATIENT
  Age: 20 Year

DRUGS (2)
  1. TAMIFLU [Suspect]
     Route: 048
     Dates: start: 20110307, end: 20110307
  2. TAMIFLU [Suspect]
     Route: 048
     Dates: start: 20110308, end: 20110308

REACTIONS (1)
  - OVERDOSE [None]
